FAERS Safety Report 23723812 (Version 1)
Quarter: 2024Q2

REPORT INFORMATION
  Report Type: Spontaneous
  Country: US (occurrence: None)
  Receive Date: 20240409
  Receipt Date: 20240409
  Transmission Date: 20240715
  Serious: No
  Sender: FDA-Public Use
  Company Number: None

PATIENT
  Age: 29 Year
  Sex: Female
  Weight: 71.55 kg

DRUGS (4)
  1. MONISTAT 3 [Suspect]
     Active Substance: MICONAZOLE NITRATE
     Indication: Vulvovaginal mycotic infection
     Dosage: OTHER QUANTITY : 1 CREAM IN APPLIATOR;?FREQUENCY : AT BEDTIME;?
     Route: 067
     Dates: start: 20240409
  2. Nuvaring Fluoxetine [Concomitant]
  3. WELLBUTRIN [Concomitant]
  4. Zzzquil Melatonin [Concomitant]

REACTIONS (2)
  - Application site pruritus [None]
  - Application site pain [None]

NARRATIVE: CASE EVENT DATE: 20240409
